FAERS Safety Report 25751890 (Version 1)
Quarter: 2025Q3

REPORT INFORMATION
  Report Type: Spontaneous
  Country: US (occurrence: None)
  Receive Date: 20250902
  Receipt Date: 20250902
  Transmission Date: 20251021
  Serious: Yes (Hospitalization)
  Sender: FDA-CTU
  Company Number: None

PATIENT
  Age: 89 Year
  Sex: Female

DRUGS (7)
  1. LENALIDOMIDE [Suspect]
     Active Substance: LENALIDOMIDE
     Indication: Plasma cell myeloma
     Route: 048
     Dates: start: 20250813
  2. CALCIUM [Concomitant]
     Active Substance: CALCIUM
  3. COENZYME Q10 [Concomitant]
     Active Substance: DIETARY SUPPLEMENT\UBIDECARENONE
  4. METAMUCIL [Concomitant]
     Active Substance: PLANTAGO SEED
  5. PYRIDOXINE POW HCL [Concomitant]
  6. VITAMIN B12 [Concomitant]
     Active Substance: CYANOCOBALAMIN
  7. XGEVA [Concomitant]
     Active Substance: DENOSUMAB

REACTIONS (2)
  - Subarachnoid haemorrhage [None]
  - Fall [None]

NARRATIVE: CASE EVENT DATE: 20250401
